FAERS Safety Report 11346853 (Version 1)
Quarter: 2015Q3

REPORT INFORMATION
  Report Type: Spontaneous
  Country: US (occurrence: US)
  Receive Date: 20150803
  Receipt Date: 20150803
  Transmission Date: 20151125
  Serious: No
  Sender: FDA-Public Use
  Company Number: US-ELI_LILLY_AND_COMPANY-US201101004967

PATIENT
  Sex: Female

DRUGS (4)
  1. ZYPREXA [Suspect]
     Active Substance: OLANZAPINE
     Dosage: 2.5 MG, QOD
     Dates: start: 201101
  2. BABY ASPIRIN [Concomitant]
     Active Substance: ASPIRIN
  3. ZYPREXA [Suspect]
     Active Substance: OLANZAPINE
     Indication: DEPRESSION
     Dosage: 2.5 MG, DAILY (1/D)
     Dates: end: 201101
  4. MECLIZINE [Concomitant]
     Active Substance: MECLIZINE\MECLIZINE HYDROCHLORIDE

REACTIONS (3)
  - Inappropriate schedule of drug administration [Unknown]
  - Dizziness [Unknown]
  - Heart rate decreased [Unknown]

NARRATIVE: CASE EVENT DATE: 2010
